FAERS Safety Report 25226387 (Version 2)
Quarter: 2025Q2

REPORT INFORMATION
  Report Type: Spontaneous
  Country: TW (occurrence: TW)
  Receive Date: 20250422
  Receipt Date: 20250430
  Transmission Date: 20250716
  Serious: Yes (Other)
  Sender: SANDOZ
  Company Number: TW-002147023-NVSC2025TW064989

PATIENT
  Age: 14 Year
  Sex: Male

DRUGS (5)
  1. DOXYCYCLINE [Suspect]
     Active Substance: DOXYCYCLINE
     Indication: Product used for unknown indication
     Route: 065
  2. LIRAGLUTIDE [Suspect]
     Active Substance: LIRAGLUTIDE
     Indication: Product used for unknown indication
     Route: 065
  3. METFORMIN [Suspect]
     Active Substance: METFORMIN HYDROCHLORIDE
     Indication: Product used for unknown indication
     Route: 065
  4. BLEOMYCIN [Concomitant]
     Active Substance: BLEOMYCIN SULFATE
     Indication: Neoplasm progression
     Dosage: UNK, Q3W (2 MG/DOSE, INTRACYSTIC VIA AN OMMAYA RESERVOIR FOR A TOTAL OF 20 DOSES)
     Route: 065
     Dates: start: 20241101, end: 20241230
  5. CARBOPLATIN [Concomitant]
     Active Substance: CARBOPLATIN
     Indication: Brain neoplasm
     Dosage: UNK, QMO (500 MG/M2/DOSE)
     Route: 065
     Dates: start: 20210309, end: 20220701

REACTIONS (9)
  - Disease progression [Unknown]
  - BRAF gene mutation [Unknown]
  - Hydrocephalus [Unknown]
  - Subdural haemorrhage [Unknown]
  - Astrocytoma [Unknown]
  - Gait disturbance [Unknown]
  - Motor dysfunction [Unknown]
  - Nausea [Unknown]
  - Vomiting [Unknown]

NARRATIVE: CASE EVENT DATE: 20210123
